FAERS Safety Report 24229696 (Version 2)
Quarter: 2024Q3

REPORT INFORMATION
  Report Type: Report from Study
  Country: GB (occurrence: GB)
  Receive Date: 20240820
  Receipt Date: 20240822
  Transmission Date: 20241017
  Serious: Yes (Other)
  Sender: PFIZER
  Company Number: GB-SAMSUNG BIOEPIS-SB-2024-11636

PATIENT
  Age: 45 Year
  Sex: Female

DRUGS (2)
  1. METHOTREXATE SODIUM [Suspect]
     Active Substance: METHOTREXATE SODIUM
  2. IMRALDI [Suspect]
     Active Substance: ADALIMUMAB
     Indication: Psoriatic arthropathy
     Dosage: 40 MG, CYCLIC (40 MG/ 0.8 ML; FREQ: 2WK)
     Route: 058

REACTIONS (3)
  - Psoriatic arthropathy [Unknown]
  - Lower respiratory tract infection [Unknown]
  - Impaired healing [Unknown]
